FAERS Safety Report 8101146-7 (Version None)
Quarter: 2012Q1

REPORT INFORMATION
  Report Type: 
  Country: None (occurrence: None)
  Receive Date: 20120129
  Receipt Date: 20111013
  Transmission Date: 20120608
  Serious: No
  Sender: FDA-Public Use
  Company Number: US-ABBOTT-11P-163-0863767-00

PATIENT
  Age: 43 Year
  Sex: Male

DRUGS (2)
  1. HUMIRA [Suspect]
     Indication: PSORIASIS
     Dates: start: 20100101
  2. PRILOSEC [Concomitant]
     Indication: GASTROOESOPHAGEAL REFLUX DISEASE

REACTIONS (6)
  - TONSILLITIS [None]
  - LYMPHADENOPATHY [None]
  - TOOTHACHE [None]
  - PAIN IN JAW [None]
  - NECK PAIN [None]
  - TONSILLAR DISORDER [None]
